FAERS Safety Report 7335482-9 (Version None)
Quarter: 2011Q1

REPORT INFORMATION
  Report Type: 
  Country: None (occurrence: None)
  Receive Date: 20110307
  Receipt Date: 20110224
  Transmission Date: 20110831
  Serious: Yes (Hospitalization)
  Sender: FDA-Public Use
  Company Number: NL-MEDIMMUNE-MEDI-0012759

PATIENT
  Sex: Female
  Weight: 5.3 kg

DRUGS (2)
  1. SYNAGIS [Suspect]
     Route: 030
     Dates: start: 20110224, end: 20110224
  2. SYNAGIS [Suspect]
     Route: 030
     Dates: start: 20100908, end: 20110128

REACTIONS (4)
  - MUSCLE CONTRACTURE [None]
  - INFANTILE SPITTING UP [None]
  - SENSE OF OPPRESSION [None]
  - PNEUMONIA [None]
